FAERS Safety Report 17172067 (Version 3)
Quarter: 2021Q1

REPORT INFORMATION
  Report Type: Report from Study
  Country: DE (occurrence: DE)
  Receive Date: 20191218
  Receipt Date: 20210330
  Transmission Date: 20210419
  Serious: Yes (Life-Threatening)
  Sender: FDA-Public Use
  Company Number: DE-AMGEN-DEUNI2019207571

PATIENT
  Age: 64 Year
  Sex: Female
  Weight: 64 kg

DRUGS (33)
  1. FOLINIC ACID [Suspect]
     Active Substance: LEUCOVORIN
     Dosage: 520 MILLIGRAM
     Route: 065
     Dates: start: 20190910
  2. TETRACYCLIN WOLFF [Concomitant]
     Dosage: 250 MILLIGRAM, QD
     Route: 048
     Dates: start: 20181207
  3. FOLINIC ACID [Suspect]
     Active Substance: LEUCOVORIN
     Dosage: 355 MILLIGRAM
     Route: 065
     Dates: start: 20190211
  4. FOLINIC ACID [Suspect]
     Active Substance: LEUCOVORIN
     Dosage: 560 MILLIGRAM
     Route: 065
     Dates: start: 20191126
  5. FLUOROURACIL. [Suspect]
     Active Substance: FLUOROURACIL
     Indication: COLORECTAL CANCER METASTATIC
     Dosage: 700 MILLIGRAM
     Route: 040
     Dates: start: 20181210
  6. FLUOROURACIL. [Suspect]
     Active Substance: FLUOROURACIL
     Dosage: 3265 MILLIGRAM
     Route: 042
     Dates: start: 20190225
  7. FLUOROURACIL. [Suspect]
     Active Substance: FLUOROURACIL
     Dosage: 3115 MILLIGRAM
     Route: 042
     Dates: start: 20190910
  8. FOLINIC ACID [Suspect]
     Active Substance: LEUCOVORIN
     Indication: COLORECTAL CANCER METASTATIC
     Dosage: 700 MILLIGRAM
     Route: 065
     Dates: start: 20181210
  9. FOLINIC ACID [Suspect]
     Active Substance: LEUCOVORIN
     Dosage: 540 MILLIGRAM
     Route: 065
     Dates: start: 20190114
  10. FOLINIC ACID [Suspect]
     Active Substance: LEUCOVORIN
     Dosage: 540 MILLIGRAM
     Route: 065
     Dates: start: 20190401
  11. FOLINIC ACID [Suspect]
     Active Substance: LEUCOVORIN
     Dosage: 550 MILLIGRAM
     Route: 065
     Dates: start: 20190527
  12. FOLINIC ACID [Suspect]
     Active Substance: LEUCOVORIN
     Dosage: 555 MILLIGRAM
     Route: 065
     Dates: start: 20190729
  13. FLUOROURACIL. [Suspect]
     Active Substance: FLUOROURACIL
     Dosage: 3245 MILLIGRAM
     Route: 042
     Dates: start: 20190114
  14. FLUOROURACIL. [Suspect]
     Active Substance: FLUOROURACIL
     Dosage: 3380 MILLIGRAM
     Route: 042
     Dates: start: 20191126
  15. IRINOTECAN [Suspect]
     Active Substance: IRINOTECAN
     Dosage: 250 MILLIGRAM
     Route: 065
     Dates: start: 20191112
  16. PANITUMUMAB [Suspect]
     Active Substance: PANITUMUMAB
     Dosage: 360 MILLIGRAM
     Route: 042
     Dates: start: 20190225
  17. FLUOROURACIL. [Suspect]
     Active Substance: FLUOROURACIL
     Dosage: 3285 MILLIGRAM
     Route: 042
     Dates: start: 20190513
  18. FLUOROURACIL. [Suspect]
     Active Substance: FLUOROURACIL
     Dosage: 3340 MILLIGRAM
     Route: 042
     Dates: start: 20190729
  19. IRINOTECAN [Suspect]
     Active Substance: IRINOTECAN
     Indication: COLORECTAL CANCER METASTATIC
     Dosage: 315 MILLIGRAM
     Route: 065
     Dates: start: 20181210
  20. METRONIDAZOL?RATIOPHARM [Concomitant]
     Indication: RASH
     Dosage: UNK UNK, AS NECESSARY
     Route: 062
     Dates: start: 20190125
  21. IRINOTECAN [Suspect]
     Active Substance: IRINOTECAN
     Dosage: 245 MILLIGRAM
     Route: 065
     Dates: start: 20190114
  22. PANITUMUMAB [Suspect]
     Active Substance: PANITUMUMAB
     Dosage: 365 MILLIGRAM
     Route: 042
     Dates: start: 20190513
  23. FOLINIC ACID [Suspect]
     Active Substance: LEUCOVORIN
     Dosage: 555 MILLIGRAM
     Route: 065
     Dates: start: 20191112
  24. MCP?RATIOPHARM [Concomitant]
     Active Substance: METOCLOPRAMIDE HYDROCHLORIDE
     Indication: VOMITING
     Dosage: UNK MILLILITER, AS NECESSARY (10 MG/2 ML)
     Route: 048
     Dates: start: 20181212
  25. PANITUMUMAB [Suspect]
     Active Substance: PANITUMUMAB
     Indication: COLORECTAL CANCER METASTATIC
     Dosage: 385 MILLIGRAM
     Route: 042
     Dates: start: 20181210
  26. PANITUMUMAB [Suspect]
     Active Substance: PANITUMUMAB
     Dosage: 370 MILLIGRAM
     Route: 042
     Dates: start: 20190527
  27. PANITUMUMAB [Suspect]
     Active Substance: PANITUMUMAB
     Dosage: 380 MILLIGRAM
     Route: 042
     Dates: start: 20190729
  28. FLUOROURACIL. [Suspect]
     Active Substance: FLUOROURACIL
     Dosage: 3300 MILLIGRAM
     Route: 042
     Dates: start: 20190527
  29. IRINOTECAN [Suspect]
     Active Substance: IRINOTECAN
     Dosage: 230 MILLIGRAM
     Route: 065
     Dates: start: 20190910
  30. PANITUMUMAB [Suspect]
     Active Substance: PANITUMUMAB
     Dosage: 355 MILLIGRAM
     Route: 042
     Dates: start: 20190114
  31. FOLINIC ACID [Suspect]
     Active Substance: LEUCOVORIN
     Dosage: 545 MILLIGRAM
     Route: 065
     Dates: start: 20190225
  32. FLUOROURACIL. [Suspect]
     Active Substance: FLUOROURACIL
     Dosage: 4200 MILLIGRAM
     Route: 042
     Dates: start: 20181224
  33. IRINOTECAN [Suspect]
     Active Substance: IRINOTECAN
     Dosage: 255 MILLIGRAM
     Route: 065
     Dates: start: 20191126

REACTIONS (2)
  - Dermatitis acneiform [Recovered/Resolved]
  - Rash [Recovered/Resolved]

NARRATIVE: CASE EVENT DATE: 20190909
